FAERS Safety Report 7494980-8 (Version None)
Quarter: 2011Q2

REPORT INFORMATION
  Report Type: 
  Country: None (occurrence: None)
  Receive Date: 20110520
  Receipt Date: 20110504
  Transmission Date: 20111010
  Serious: No
  Sender: FDA-Public Use
  Company Number: US-B.I. PHARMACEUTICALS,INC./RIDGEFIELD-2011-BP-06873BP

PATIENT
  Age: 87 Year
  Sex: Female

DRUGS (12)
  1. ATENOLOL [Concomitant]
  2. PRADAXA [Suspect]
     Indication: ATRIAL FIBRILLATION
     Dosage: 300 MG
     Route: 048
     Dates: start: 20110224
  3. CELEBREX [Concomitant]
  4. XALATAN [Concomitant]
  5. PRADAXA [Suspect]
     Indication: DRUG THERAPY CHANGED
  6. POTASSIUM CL [Concomitant]
  7. OMEPRAZOLE [Concomitant]
     Indication: DYSPEPSIA
  8. RANITIDINE [Concomitant]
  9. SIMVASTATIN [Concomitant]
     Indication: BLOOD CHOLESTEROL
  10. FUROSEMIDE [Concomitant]
     Indication: DIURETIC THERAPY
  11. LEVOTHYROXINE SODIUM [Concomitant]
     Indication: THYROID DISORDER
  12. PRADAXA [Suspect]
     Indication: ANTICOAGULANT THERAPY

REACTIONS (1)
  - SENSATION OF FOREIGN BODY [None]
